FAERS Safety Report 6175771-7 (Version None)
Quarter: 2009Q2

REPORT INFORMATION
  Report Type: 
  Country: None (occurrence: None)
  Receive Date: 20090501
  Receipt Date: 20090423
  Transmission Date: 20091009
  Serious: Yes (Other)
  Sender: FDA-Public Use
  Company Number: CN-JNJFOC-20090406240

PATIENT
  Age: 10 Month
  Sex: Male

DRUGS (2)
  1. INFANTS' TYLENOL [Suspect]
     Route: 048
  2. INFANTS' TYLENOL [Suspect]
     Indication: PYREXIA
     Route: 048

REACTIONS (1)
  - INCORRECT DOSE ADMINISTERED [None]
